FAERS Safety Report 9322968 (Version 3)
Quarter: 2014Q3

REPORT INFORMATION
  Report Type: Spontaneous
  Country: US (occurrence: US)
  Receive Date: 20130603
  Receipt Date: 20140828
  Transmission Date: 20150326
  Serious: Yes (Other)
  Sender: FDA-Public Use
  Company Number: US-ROCHE-1029250

PATIENT
  Age: 24 Year
  Sex: Male
  Weight: 56.75 kg

DRUGS (1)
  1. ACCUTANE [Suspect]
     Active Substance: ISOTRETINOIN
     Indication: ACNE
     Route: 065
     Dates: start: 198801, end: 198912

REACTIONS (4)
  - Depression [Unknown]
  - Deep vein thrombosis [Unknown]
  - Colitis ulcerative [Unknown]
  - Inflammatory bowel disease [Unknown]

NARRATIVE: CASE EVENT DATE: 199412
